FAERS Safety Report 13486886 (Version 1)
Quarter: 2017Q2

REPORT INFORMATION
  Report Type: Spontaneous
  Country: US (occurrence: US)
  Receive Date: 20170426
  Receipt Date: 20170426
  Transmission Date: 20170830
  Serious: No
  Sender: FDA-Public Use
  Company Number: US-AMGEN-USASP2017057426

PATIENT
  Age: 44 Year
  Sex: Female

DRUGS (3)
  1. ENBREL [Suspect]
     Active Substance: ETANERCEPT
     Dosage: UNK, QWK
     Route: 065
     Dates: start: 2014
  2. ENBREL [Suspect]
     Active Substance: ETANERCEPT
     Indication: RHEUMATOID ARTHRITIS
     Dosage: UNK, Q3WK
     Route: 065
  3. FLONASE [Suspect]
     Active Substance: FLUTICASONE PROPIONATE
     Indication: SINUSITIS
     Route: 065

REACTIONS (8)
  - Sinusitis [Unknown]
  - Immune system disorder [Unknown]
  - Drug dose omission [Unknown]
  - Off label use [Unknown]
  - Skin ulcer [Unknown]
  - Unevaluable event [Unknown]
  - Injection site haemorrhage [Unknown]
  - Oral herpes [Unknown]
